FAERS Safety Report 8332460-8 (Version None)
Quarter: 2012Q2

REPORT INFORMATION
  Report Type: 
  Country: None (occurrence: None)
  Receive Date: 20120503
  Receipt Date: 20120425
  Transmission Date: 20120825
  Serious: No
  Sender: FDA-Public Use
  Company Number: US-PFIZER INC-2012104729

PATIENT
  Age: 69 Year
  Sex: Female

DRUGS (7)
  1. PRISTIQ [Suspect]
     Indication: DEPRESSION
     Dosage: 100 MG, 1X/DAY (100 MG, 1 IN 1 D)
     Dates: end: 20120403
  2. PRISTIQ [Suspect]
     Dosage: 50 MG, 1X/DAY (50 MG, 1 IN 1 D)
     Dates: start: 20120404, end: 20120406
  3. LOVAZA [Concomitant]
     Indication: BLOOD TRIGLYCERIDES INCREASED
     Dosage: UNK
  4. LIPITOR [Concomitant]
     Indication: BLOOD CHOLESTEROL INCREASED
     Dosage: UNK
  5. VALSARTAN [Concomitant]
     Indication: HYPERTENSION
     Dosage: UNK
  6. VILAZODONE [Suspect]
     Indication: DEPRESSION
     Dosage: 10 MG, 1X/DAY (10 MG, 1 IN 1 D)
     Dates: start: 20120407
  7. SYNTHROID [Concomitant]
     Indication: THYROIDECTOMY
     Dosage: UNK

REACTIONS (3)
  - INSOMNIA [None]
  - FEELING ABNORMAL [None]
  - DIARRHOEA [None]
